FAERS Safety Report 22651741 (Version 1)
Quarter: 2023Q2

REPORT INFORMATION
  Report Type: Spontaneous
  Country: US (occurrence: US)
  Receive Date: 20230628
  Receipt Date: 20230628
  Transmission Date: 20230721
  Serious: No
  Sender: FDA-Public Use
  Company Number: US-CTI BIOPHARMA-2023US03554

PATIENT

DRUGS (10)
  1. VONJO [Suspect]
     Active Substance: PACRITINIB
     Indication: Myelofibrosis
     Dosage: 200 MG, BID
     Route: 048
  2. DESLORATADINE [Concomitant]
     Active Substance: DESLORATADINE
  3. DOPTELET [Concomitant]
     Active Substance: AVATROMBOPAG MALEATE
  4. IMODIUM A-D [Concomitant]
     Active Substance: LOPERAMIDE HYDROCHLORIDE
  5. LORAZEPAM [Concomitant]
     Active Substance: LORAZEPAM
  6. ACETAMINOPHEN\OXYCODONE HYDROCHLORIDE\OXYCODONE TEREPHTHALATE [Concomitant]
     Active Substance: ACETAMINOPHEN\OXYCODONE HYDROCHLORIDE\OXYCODONE TEREPHTHALATE
  7. PREDNISONE [Concomitant]
     Active Substance: PREDNISONE
  8. PROMACTA [Concomitant]
     Active Substance: ELTROMBOPAG OLAMINE
  9. TAMSULOSIN [Concomitant]
     Active Substance: TAMSULOSIN
  10. TRAZODONE [Concomitant]
     Active Substance: TRAZODONE HYDROCHLORIDE

REACTIONS (1)
  - Hypersensitivity [Unknown]
